FAERS Safety Report 6501426-2 (Version None)
Quarter: 2009Q4

REPORT INFORMATION
  Report Type: 
  Country: None (occurrence: None)
  Receive Date: 20091127
  Receipt Date: 20090916
  Transmission Date: 20100525
  Serious: Yes (Disabling)
  Sender: FDA-Public Use
  Company Number: WAES 0705USA01536

PATIENT
  Age: 62 Year
  Sex: Female
  Weight: 71.2147 kg

DRUGS (1)
  1. FOSAMAX [Suspect]
     Indication: OSTEOPOROSIS
     Dosage: 70 MG/PO
     Route: 048
     Dates: start: 20030429, end: 20070306

REACTIONS (13)
  - ADVERSE EVENT [None]
  - BRONCHITIS [None]
  - DEVICE FAILURE [None]
  - GINGIVAL INFECTION [None]
  - IMPLANT SITE DISCHARGE [None]
  - LOCALISED INFECTION [None]
  - PAIN [None]
  - PAIN IN JAW [None]
  - RESORPTION BONE INCREASED [None]
  - STRESS [None]
  - SWELLING [None]
  - TEMPOROMANDIBULAR JOINT SYNDROME [None]
  - TOOTH LOSS [None]
